FAERS Safety Report 4927440-6 (Version None)
Quarter: 2006Q1

REPORT INFORMATION
  Report Type: 
  Country: None (occurrence: None)
  Receive Date: 20060228
  Receipt Date: 20050902
  Transmission Date: 20060701
  Serious: Yes (Life-Threatening, Hospitalization)
  Sender: FDA-Public Use
  Company Number: US-NOVOPROD-246675

PATIENT
  Age: 3 Year
  Sex: Male
  Weight: 15 kg

DRUGS (4)
  1. NORDITROPIN CARTRIDGES [Suspect]
     Indication: HYPOPITUITARISM
     Dosage: .5 MG, QD
     Route: 058
     Dates: start: 20021031
  2. HYDROCORTISONE [Concomitant]
     Indication: HYPOPITUITARISM
     Dosage: UNK, UNK
     Route: 048
  3. HYDROCORTISONE [Concomitant]
     Dosage: 2 CC TID
     Route: 058
     Dates: start: 20050830, end: 20050901
  4. SYNTHROID [Concomitant]
     Indication: HYPOPITUITARISM

REACTIONS (1)
  - HYPOGLYCAEMIC SEIZURE [None]
